FAERS Safety Report 6978932-X (Version None)
Quarter: 2010Q3

REPORT INFORMATION
  Report Type: 
  Country: None (occurrence: None)
  Receive Date: 20100908
  Receipt Date: 20100827
  Transmission Date: 20110219
  Serious: Yes (Other)
  Sender: FDA-Public Use
  Company Number: 8053639

PATIENT
  Sex: Female
  Weight: 68.1 kg

DRUGS (4)
  1. KEPPRA XR [Suspect]
     Indication: COMPLEX PARTIAL SEIZURES
     Dosage: (500 MG BID ORAL)
     Route: 048
     Dates: start: 20090518, end: 20090823
  2. KEPPRA XR [Suspect]
     Indication: GRAND MAL CONVULSION
     Dosage: (500 MG BID ORAL)
     Route: 048
     Dates: start: 20090518, end: 20090823
  3. KEPPRA [Suspect]
     Indication: CONVULSION
     Dates: start: 19980101, end: 20090823
  4. KEPPRA [Suspect]
     Indication: CONVULSION
     Dates: start: 20040824

REACTIONS (4)
  - ENCEPHALOMALACIA [None]
  - GRAND MAL CONVULSION [None]
  - HALLUCINATION, VISUAL [None]
  - INJURY [None]
